FAERS Safety Report 12775569 (Version 13)
Quarter: 2017Q3

REPORT INFORMATION
  Report Type: Report from Study
  Country: UA (occurrence: UA)
  Receive Date: 20160923
  Receipt Date: 20170908
  Transmission Date: 20171127
  Serious: Yes (Death, Life-Threatening, Other)
  Sender: FDA-Public Use
  Company Number: US-PFIZER INC-2016442952

PATIENT
  Age: 12 Year
  Sex: Male

DRUGS (8)
  1. CYTARABINE. [Suspect]
     Active Substance: CYTARABINE
     Dosage: 1 DF, BID (1 DF=3000 UNIT NOS 30MG I/TEC. 31AUG16)
     Route: 042
     Dates: start: 20160902, end: 20160903
  2. VINCRISTINE SULFATE. [Suspect]
     Active Substance: VINCRISTINE SULFATE
     Dosage: 2 MG, UNK
     Route: 042
     Dates: start: 20160830, end: 20160904
  3. ASPARAGINASE [Suspect]
     Active Substance: ASPARAGINASE
     Dosage: UNK
  4. METHOTREXATE SODIUM. [Suspect]
     Active Substance: METHOTREXATE SODIUM
     Dosage: 1540 MG, UNK (FREQUENCY-36 HOURS) (12MG I/TEC)
     Route: 042
     Dates: start: 20160830, end: 20160831
  5. APIXABAN [Suspect]
     Active Substance: APIXABAN
     Indication: THROMBOSIS PROPHYLAXIS
     Dosage: 10 MG, DAILY
     Route: 048
     Dates: start: 20160728, end: 20160906
  6. APIXABAN [Suspect]
     Active Substance: APIXABAN
     Dosage: 10 MG, DAILY
     Route: 048
     Dates: start: 20160907, end: 20160908
  7. APIXABAN [Suspect]
     Active Substance: APIXABAN
     Dosage: 10 MG, DAILY
     Route: 048
     Dates: start: 20160908
  8. PEGASPARGASE [Suspect]
     Active Substance: PEGASPARGASE
     Dosage: 1540 U, UNK
     Route: 042
     Dates: start: 20160904, end: 20160904

REACTIONS (4)
  - Drug-induced liver injury [Recovered/Resolved]
  - Meningitis [Fatal]
  - Sepsis [Fatal]
  - Multiple organ dysfunction syndrome [Fatal]

NARRATIVE: CASE EVENT DATE: 20160905
